FAERS Safety Report 13995528 (Version 1)
Quarter: 2017Q3

REPORT INFORMATION
  Report Type: Spontaneous
  Country: US (occurrence: US)
  Receive Date: 20170921
  Receipt Date: 20170921
  Transmission Date: 20171128
  Serious: Yes (Other)
  Sender: FDA-Public Use
  Company Number: US-TORRENT-00003406

PATIENT
  Age: 66 Year
  Sex: Female

DRUGS (12)
  1. AZITHROMYCIN ANHYDROUS. [Suspect]
     Active Substance: AZITHROMYCIN ANHYDROUS
  2. TACROLIMUS. [Concomitant]
     Active Substance: TACROLIMUS
  3. PENTAMIDINE [Concomitant]
     Active Substance: PENTAMIDINE
  4. INSULIN ASPART [Concomitant]
     Active Substance: INSULIN ASPART
  5. ATORVASTATIN [Concomitant]
     Active Substance: ATORVASTATIN
  6. MOXIFLOXACIN. [Suspect]
     Active Substance: MOXIFLOXACIN
  7. FILGRASTIM [Concomitant]
     Active Substance: FILGRASTIM
  8. ETHAMBUTOL [Suspect]
     Active Substance: ETHAMBUTOL HYDROCHLORIDE
  9. RIFAMPIN. [Concomitant]
     Active Substance: RIFAMPIN
  10. ACETYLSALICYLIC ACID [Concomitant]
     Active Substance: ASPIRIN
  11. PREDNISONE. [Concomitant]
     Active Substance: PREDNISONE
  12. LEVEMIR [Concomitant]
     Active Substance: INSULIN DETEMIR

REACTIONS (7)
  - Diarrhoea [Recovering/Resolving]
  - Nausea [Unknown]
  - Decreased appetite [Unknown]
  - Off label use [Unknown]
  - Optic neuritis [Unknown]
  - Visual impairment [Recovering/Resolving]
  - Weight decreased [Unknown]
